FAERS Safety Report 16818167 (Version 1)
Quarter: 2019Q3

REPORT INFORMATION
  Report Type: Spontaneous
  Country: ES (occurrence: ES)
  Receive Date: 20190917
  Receipt Date: 20190917
  Transmission Date: 20191005
  Serious: Yes (Hospitalization)
  Sender: FDA-Public Use
  Company Number: ES-MYLANLABS-2019M1086836

PATIENT
  Age: 79 Year
  Sex: Male

DRUGS (3)
  1. FUROSEMIDE. [Interacting]
     Active Substance: FUROSEMIDE
     Dosage: 120 MILLIGRAM, QD (2-1-0)
     Route: 048
     Dates: start: 20190201, end: 20190322
  2. ESPIRONOLACTONA [Interacting]
     Active Substance: SPIRONOLACTONE
     Indication: CARDIAC FAILURE
     Dosage: 100 MILLIGRAM, QD
     Route: 001
     Dates: start: 20171114, end: 20190322
  3. FUROSEMIDE. [Suspect]
     Active Substance: FUROSEMIDE
     Indication: CARDIAC FAILURE
     Dosage: 80 MILLIGRAM, QD
     Route: 048
     Dates: start: 20151213, end: 20190131

REACTIONS (2)
  - Drug interaction [Unknown]
  - Acute kidney injury [Recovered/Resolved]

NARRATIVE: CASE EVENT DATE: 20190322
